FAERS Safety Report 8064557-4 (Version None)
Quarter: 2012Q1

REPORT INFORMATION
  Report Type: 
  Country: None (occurrence: None)
  Receive Date: 20120123
  Receipt Date: 20120113
  Transmission Date: 20120608
  Serious: Yes (Other)
  Sender: FDA-Public Use
  Company Number: CN-ASTRAZENECA-2012SE02492

PATIENT
  Sex: Female

DRUGS (3)
  1. BUPIVACAINE HCL [Suspect]
     Indication: ANAESTHESIA
     Dosage: 1.25 G/L
  2. PROPOFOL [Suspect]
     Indication: ANAESTHESIA
     Dosage: 1.5 UG/ML
     Route: 042
  3. REMIFENTANIL [Suspect]
     Indication: ANAESTHESIA
     Dosage: 1 NG/ML
     Route: 042

REACTIONS (2)
  - RESPIRATORY DEPRESSION [None]
  - DYSKINESIA [None]
